FAERS Safety Report 9145478 (Version 1)
Quarter: 2013Q1

REPORT INFORMATION
  Report Type: Spontaneous
  Country: IT (occurrence: IT)
  Receive Date: 20130307
  Receipt Date: 20130307
  Transmission Date: 20140127
  Serious: Yes (Hospitalization)
  Sender: FDA-Public Use
  Company Number: IT-PFIZER INC-2013078601

PATIENT
  Age: 50 Year
  Sex: Male

DRUGS (4)
  1. TRIATEC [Suspect]
     Indication: PRODUCT USED FOR UNKNOWN INDICATION
     Dosage: 2.5 MG, UNK
     Route: 048
     Dates: start: 20130228, end: 20130228
  2. TRIATEC [Suspect]
     Dosage: 2.5 MG, UNK
     Dates: start: 20130128
  3. CARDIRENE [Concomitant]
  4. CONGESCOR [Concomitant]

REACTIONS (8)
  - Abdominal pain [Recovering/Resolving]
  - Loss of consciousness [Recovering/Resolving]
  - Orthostatic hypotension [Recovering/Resolving]
  - Overdose [Recovering/Resolving]
  - Hypotension [Recovering/Resolving]
  - Asthenia [Recovering/Resolving]
  - Dyspnoea [Recovering/Resolving]
  - Palpitations [Recovering/Resolving]
